FAERS Safety Report 9839172 (Version 1)
Quarter: 2014Q1

REPORT INFORMATION
  Report Type: Spontaneous
  Country: CA (occurrence: None)
  Receive Date: 20140116
  Receipt Date: 20140116
  Transmission Date: 20141002
  Serious: Yes (Other)
  Sender: FDA-Public Use
  Company Number: 2014AP000196

PATIENT
  Age: 83 Year
  Sex: Female

DRUGS (20)
  1. METOPROLOL [Suspect]
     Indication: CORONARY ARTERY DISEASE
  2. AMLODIPINE (AMLODIPINE) [Suspect]
     Indication: HYPERTENSION
  3. FUROSEMIDE (FUROSEMIDE) [Suspect]
     Indication: PRODUCT USED FOR UNKNOWN INDICATION
     Dosage: AM
  4. NITROGLYCERIN [Suspect]
     Indication: ANGINA PECTORIS
     Dosage: PAT, TDER
  5. AMITRIPTYLINE (AMITRIPTYLINE) [Concomitant]
  6. GABAPENTIN (GABAPENTIN) [Concomitant]
  7. IRON (IRON) [Concomitant]
  8. RAMIPRIL (RAMIPRIL) [Concomitant]
  9. CLOPIDOGREL (CLOPIDOGREL) [Concomitant]
  10. ATORVASTATIN (ATORVASTATIN) [Concomitant]
  11. ESCITALOPRAM (ESCITALOPRAM) [Concomitant]
  12. ZOPICLONE (ZOPICLONE) [Concomitant]
  13. PRAXITEN PLIVA (OXAZEPAM) (OXAZEPAM) [Concomitant]
  14. VITAMIN D /00107901/ (ERGOCALCIFEROL) [Concomitant]
  15. ACETAMINOPHEN W/CODEINE (GALENIC /PARACETAMOL/CODEINE/) [Concomitant]
  16. ACTEAMINOPHEN (PARACETAMOL) [Concomitant]
  17. PANTOPRAZOLE (PANTOPRAZOLE) [Concomitant]
  18. HYDROXYCHLOROQUINE SUJLFATE (HYDROXYCHLOROQUINE SULFATE) [Concomitant]
  19. ATORVASTATIN (ATORVASTATIN) [Concomitant]
  20. POLYETHYLENE GLYCOL (MACROGOL) [Concomitant]

REACTIONS (11)
  - Hypotension [None]
  - Dizziness [None]
  - Fall [None]
  - Bradycardia [None]
  - Oedema peripheral [None]
  - Hypokalaemia [None]
  - Balance disorder [None]
  - Gait disturbance [None]
  - Serum ferritin decreased [None]
  - Creatinine renal clearance decreased [None]
  - Haemoglobin decreased [None]
